FAERS Safety Report 7378815-X (Version None)
Quarter: 2011Q1

REPORT INFORMATION
  Report Type: 
  Country: None (occurrence: None)
  Receive Date: 20110328
  Receipt Date: 20110314
  Transmission Date: 20110831
  Serious: Yes (Hospitalization, Disabling)
  Sender: FDA-Public Use
  Company Number: PHHY2011CN21734

PATIENT
  Age: 78 Year

DRUGS (4)
  1. MOBIC [Concomitant]
     Dosage: 7.5 MG,
     Route: 048
  2. ARCOXIA [Concomitant]
  3. ACLASTA [Suspect]
     Indication: OSTEOPOROSIS
     Dosage: 5 MG,
     Route: 042
     Dates: start: 20101217
  4. CELEBREX [Concomitant]

REACTIONS (12)
  - BONE PAIN [None]
  - DYSSTASIA [None]
  - GAIT DISTURBANCE [None]
  - ARTHRALGIA [None]
  - PAIN [None]
  - CONVULSION [None]
  - INSOMNIA [None]
  - BACK PAIN [None]
  - DRUG EFFECT DECREASED [None]
  - JOINT STIFFNESS [None]
  - UNEVALUABLE EVENT [None]
  - DERMATITIS ALLERGIC [None]
